FAERS Safety Report 8283486-4 (Version None)
Quarter: 2012Q2

REPORT INFORMATION
  Report Type: 
  Country: None (occurrence: None)
  Receive Date: 20120413
  Receipt Date: 20120405
  Transmission Date: 20120825
  Serious: Yes (Hospitalization, Other)
  Sender: FDA-Public Use
  Company Number: PHHO2012NL002291

PATIENT
  Sex: Male
  Weight: 78 kg

DRUGS (19)
  1. NEORAL [Suspect]
     Indication: RENAL TRANSPLANT
     Dosage: 175 MG, BID
     Route: 048
     Dates: start: 20110805, end: 20120211
  2. NEORAL [Suspect]
     Dosage: UNK
     Route: 048
     Dates: start: 20120222
  3. MYFORTIC [Suspect]
     Indication: RENAL TRANSPLANT
     Dosage: 360 MG, BID
     Route: 048
     Dates: start: 20110713, end: 20120211
  4. MYFORTIC [Suspect]
     Dosage: NO TREATMENT RECEIVED
     Dates: start: 20120212, end: 20120221
  5. ENALAPRIL MALEATE [Concomitant]
  6. MYFORTIC [Suspect]
     Dosage: UNK
     Route: 048
     Dates: start: 20120222
  7. PREDNISOLONE [Suspect]
     Dosage: UNK
     Dates: start: 20120222
  8. AMLODIPINE [Concomitant]
     Indication: RESPIRATORY RATE INCREASED
     Dosage: 1X10
     Dates: start: 20110810
  9. NEXIUM [Concomitant]
     Indication: PROPHYLAXIS
     Dosage: 40 MG, QD
     Dates: start: 20110713
  10. MONO-CEDOCARD [Concomitant]
     Indication: HYPERTENSION
     Dosage: 50 MG, QD
     Dates: start: 20110717
  11. PREDNISOLONE [Suspect]
     Indication: RENAL TRANSPLANT
     Dosage: 10 MG, BID
     Route: 048
     Dates: start: 20110713, end: 20120211
  12. PREDNISOLONE [Suspect]
     Dosage: NO TREATMENT RECEIVED
     Dates: start: 20120212, end: 20120221
  13. CALCIUM CARBONATE [Concomitant]
     Indication: BONE DISORDER
     Dosage: UNK
     Dates: start: 20110810
  14. LIPITOR [Concomitant]
     Indication: BLOOD CHOLESTEROL INCREASED
     Dosage: 10 MG, QD
     Dates: start: 20110713
  15. NEORAL [Suspect]
     Dosage: NO TREATMENT RECEIVED
     Dates: start: 20120212, end: 20120221
  16. VALCYTE [Concomitant]
     Indication: PROPHYLAXIS
     Dosage: 1X450UNK
     Dates: start: 20110714
  17. FUROSEMIDE [Concomitant]
     Indication: DIURETIC THERAPY
     Dosage: 500 MG, QD
     Dates: start: 20110718
  18. CALCI [Concomitant]
     Indication: MINERAL SUPPLEMENTATION
     Dosage: 500 MG, QD
     Dates: start: 20110722
  19. ETALPHA [Concomitant]
     Dosage: 0.25 MG, QD
     Dates: start: 20110722

REACTIONS (9)
  - OEDEMA PERIPHERAL [None]
  - LEUKOPENIA [None]
  - THROMBOCYTOPENIA [None]
  - URETERIC STENOSIS [None]
  - HYDRONEPHROSIS [None]
  - ESCHERICHIA URINARY TRACT INFECTION [None]
  - ORTHOSTATIC HYPERTENSION [None]
  - HYPERTENSION [None]
  - PYELONEPHRITIS [None]
